FAERS Safety Report 6117721-5 (Version None)
Quarter: 2009Q1

REPORT INFORMATION
  Report Type: 
  Country: None (occurrence: None)
  Receive Date: 20090314
  Receipt Date: 20090123
  Transmission Date: 20090719
  Serious: No
  Sender: FDA-Public Use
  Company Number: US-ABBOTT-09P-163-0499969-00

PATIENT
  Sex: Female

DRUGS (3)
  1. HUMIRA [Suspect]
     Indication: CROHN'S DISEASE
     Dates: start: 20081106
  2. TEMAZEPAM [Suspect]
     Indication: SLEEP DISORDER THERAPY
     Route: 048
     Dates: start: 20090101
  3. PREDNISONE [Concomitant]
     Indication: CROHN'S DISEASE

REACTIONS (6)
  - ERYTHEMA [None]
  - FACIAL PAIN [None]
  - FEELING HOT [None]
  - PRURITUS [None]
  - RASH [None]
  - SENSATION OF HEAVINESS [None]
